FAERS Safety Report 8414049-5 (Version None)
Quarter: 2012Q2

REPORT INFORMATION
  Report Type: 
  Country: None (occurrence: None)
  Receive Date: 20120605
  Receipt Date: 20120531
  Transmission Date: 20120825
  Serious: Yes (Hospitalization)
  Sender: FDA-Public Use
  Company Number: DE-JNJFOC-20120600792

PATIENT
  Age: 43 Year
  Sex: Female
  Weight: 57 kg

DRUGS (4)
  1. VARENICLINE TARTRATE [Suspect]
     Indication: PRODUCT USED FOR UNKNOWN INDICATION
     Route: 065
  2. PLACEBO [Suspect]
     Indication: PRODUCT USED FOR UNKNOWN INDICATION
     Route: 065
  3. NICORETTE [Suspect]
     Indication: TOBACCO WITHDRAWAL SYMPTOMS
     Route: 061
     Dates: start: 20120227
  4. NICORETTE [Suspect]
     Route: 061

REACTIONS (1)
  - INTERVERTEBRAL DISC PROTRUSION [None]
